FAERS Safety Report 25921867 (Version 1)
Quarter: 2025Q4

REPORT INFORMATION
  Report Type: Report from Study
  Country: US (occurrence: None)
  Receive Date: 20251015
  Receipt Date: 20251015
  Transmission Date: 20260118
  Serious: Yes (Other)
  Sender: UCB
  Company Number: US-UCBSA-2025064321

PATIENT
  Age: 50 Year

DRUGS (1)
  1. FENFLURAMINE [Suspect]
     Active Substance: FENFLURAMINE
     Indication: Lennox-Gastaut syndrome
     Dosage: 5.7 MILLILITER, 2X/DAY (BID)

REACTIONS (2)
  - Cardiac steatosis [Not Recovered/Not Resolved]
  - Medical device battery replacement [Not Recovered/Not Resolved]
